FAERS Safety Report 9008028 (Version 2)
Quarter: 2013Q1

REPORT INFORMATION
  Report Type: Spontaneous
  Country: FR (occurrence: FR)
  Receive Date: 20130110
  Receipt Date: 20130120
  Transmission Date: 20140127
  Serious: Yes (Hospitalization)
  Sender: FDA-Public Use
  Company Number: FR-AMGEN-FRASP2013000086

PATIENT
  Age: 84 Year
  Sex: Female

DRUGS (5)
  1. NEULASTA [Suspect]
     Indication: PRODUCT USED FOR UNKNOWN INDICATION
     Dosage: 6 MG, Q4WK
     Route: 058
     Dates: start: 20121026, end: 20121122
  2. BACTRIM [Suspect]
     Indication: PRODUCT USED FOR UNKNOWN INDICATION
     Dosage: 1 DF, 2 TIMES/WK
     Route: 048
     Dates: start: 20121026, end: 20121127
  3. ZELITREX [Suspect]
     Indication: PRODUCT USED FOR UNKNOWN INDICATION
     Dosage: 500 MG, BID
     Route: 048
     Dates: start: 20121023, end: 20121127
  4. MABTHERA [Suspect]
     Indication: PRODUCT USED FOR UNKNOWN INDICATION
     Dosage: 1 DF, QD, 1 IN 1 BY CYCLE
     Route: 042
     Dates: start: 20121022
  5. LEVACT [Suspect]
     Indication: PRODUCT USED FOR UNKNOWN INDICATION
     Dosage: 1 DF, QD, 1 IN 1 BY CYCLE
     Route: 042
     Dates: start: 20121022

REACTIONS (1)
  - Rash maculo-papular [Recovering/Resolving]
